FAERS Safety Report 6706748-8 (Version None)
Quarter: 2010Q2

REPORT INFORMATION
  Report Type: 
  Country: None (occurrence: None)
  Receive Date: 20100503
  Receipt Date: 20100422
  Transmission Date: 20101027
  Serious: Yes (Other)
  Sender: FDA-Public Use
  Company Number: AU-PFIZER INC-2010049287

PATIENT
  Sex: Male

DRUGS (1)
  1. LIPITOR [Suspect]
     Dosage: 20 MG, ALTERNATE DAY

REACTIONS (4)
  - DIABETIC NEUROPATHY [None]
  - INTERVERTEBRAL DISC DISORDER [None]
  - MYALGIA [None]
  - PAIN IN EXTREMITY [None]
